FAERS Safety Report 6310280-3 (Version None)
Quarter: 2009Q3

REPORT INFORMATION
  Report Type: 
  Country: None (occurrence: None)
  Receive Date: 20090814
  Receipt Date: 20090804
  Transmission Date: 20100115
  Serious: Yes (Other)
  Sender: FDA-Public Use
  Company Number: PHHY2009MX33696

PATIENT
  Sex: Female

DRUGS (3)
  1. DIOVAN HCT [Suspect]
     Indication: HYPERTENSION
     Dosage: 1 TABLET PER DAY
     Route: 048
     Dates: start: 20070501, end: 20080702
  2. DIOVAN HCT [Suspect]
     Dosage: 1 TABLET PER DAY
     Route: 048
     Dates: start: 20080718, end: 20080801
  3. DIOVAN HCT [Suspect]
     Dosage: HALF TABLET PER DAY
     Route: 048
     Dates: start: 20080801

REACTIONS (2)
  - FALL [None]
  - FOOT FRACTURE [None]
